FAERS Safety Report 8461559-0 (Version None)
Quarter: 2012Q2

REPORT INFORMATION
  Report Type: 
  Country: None (occurrence: None)
  Receive Date: 20120625
  Receipt Date: 20120614
  Transmission Date: 20120825
  Serious: Yes (Other)
  Sender: FDA-Public Use
  Company Number: PHHY2012AU051866

PATIENT
  Sex: Male
  Weight: 172 kg

DRUGS (2)
  1. CLOZARIL [Suspect]
     Dosage: 375 MG, NOCTE
     Dates: start: 20070901
  2. VALSARTAN [Concomitant]
     Dosage: 80 MG

REACTIONS (11)
  - BLOOD CREATINE PHOSPHOKINASE INCREASED [None]
  - ARTERIOSCLEROSIS [None]
  - LEFT VENTRICULAR HYPERTROPHY [None]
  - PRODUCTIVE COUGH [None]
  - HEART RATE INCREASED [None]
  - RESPIRATORY RATE INCREASED [None]
  - CHEST PAIN [None]
  - MITRAL VALVE SCLEROSIS [None]
  - TROPONIN T INCREASED [None]
  - BLOOD PRESSURE INCREASED [None]
  - AORTIC ARTERIOSCLEROSIS [None]
